FAERS Safety Report 24966504 (Version 4)
Quarter: 2025Q1

REPORT INFORMATION
  Report Type: Spontaneous
  Country: US (occurrence: US)
  Receive Date: 20250213
  Receipt Date: 20250317
  Transmission Date: 20250409
  Serious: No
  Sender: PFIZER
  Company Number: US-PFIZER INC-202500031438

PATIENT
  Age: 79 Year
  Sex: Female

DRUGS (2)
  1. PREMARIN [Suspect]
     Active Substance: ESTROGENS, CONJUGATED
     Indication: Vulvovaginal dryness
     Route: 061
  2. PREMARIN [Suspect]
     Active Substance: ESTROGENS, CONJUGATED
     Indication: Vulvovaginal injury

REACTIONS (10)
  - Dizziness [Recovered/Resolved]
  - Abdominal pain upper [Recovered/Resolved]
  - Headache [Recovered/Resolved]
  - Illness [Recovered/Resolved]
  - Amnesia [Recovered/Resolved]
  - Nausea [Recovered/Resolved]
  - Gait disturbance [Unknown]
  - Off label use [Unknown]
  - Poor quality product administered [Unknown]
  - Product complaint [Unknown]
